FAERS Safety Report 8355278-9 (Version None)
Quarter: 2012Q2

REPORT INFORMATION
  Report Type: 
  Country: None (occurrence: None)
  Receive Date: 20120511
  Receipt Date: 20120509
  Transmission Date: 20120825
  Serious: Yes (Death, Hospitalization)
  Sender: FDA-Public Use
  Company Number: US-ACTELION-A-NJ2011-56962

PATIENT

DRUGS (5)
  1. TRACLEER [Suspect]
     Indication: PULMONARY ARTERIAL HYPERTENSION
     Dosage: UNK
     Route: 048
     Dates: start: 20100412, end: 20111001
  2. AMIODARONE HCL [Concomitant]
  3. COUMADIN [Concomitant]
  4. TRACLEER [Suspect]
     Route: 048
  5. RENAGEL [Concomitant]

REACTIONS (3)
  - SYNCOPE [None]
  - DEATH [None]
  - DYSPNOEA [None]
